FAERS Safety Report 7366431-5 (Version None)
Quarter: 2011Q1

REPORT INFORMATION
  Report Type: 
  Country: None (occurrence: None)
  Receive Date: 20110309
  Receipt Date: 20110307
  Transmission Date: 20110831
  Serious: Yes (Life-Threatening)
  Sender: FDA-Public Use
  Company Number: SP03539

PATIENT
  Age: 52 Year
  Sex: Female

DRUGS (6)
  1. LOPERAMIDE HYDROCHLORIDE [Concomitant]
  2. SALBUTAMOL [Concomitant]
  3. CHOLESTYRAMINE [Concomitant]
  4. FOLIC ACID [Concomitant]
  5. SALMETEROL XINAFOATE/FLUTICASONE PROPIONATE [Concomitant]
  6. BALSALAZIDE DISODIUM [Suspect]
     Indication: CROHN'S DISEASE
     Dosage: 1.5 GM (1.5 GM, 1 IN 1 D), ORAL
     Route: 048
     Dates: start: 20110112, end: 20110126

REACTIONS (2)
  - CONDITION AGGRAVATED [None]
  - ASTHMA [None]
